FAERS Safety Report 24810001 (Version 1)
Quarter: 2025Q1

REPORT INFORMATION
  Report Type: Spontaneous
  Country: ES (occurrence: ES)
  Receive Date: 20250106
  Receipt Date: 20250106
  Transmission Date: 20250409
  Serious: Yes (Other)
  Sender: CATALYST PHARMA
  Company Number: ES-CATALYST PHARMACEUTICALS, INC-ES-CATA-24-01646

PATIENT
  Age: 16 Year
  Sex: Male

DRUGS (2)
  1. AMIFAMPRIDINE [Suspect]
     Active Substance: AMIFAMPRIDINE
     Indication: Congenital myasthenic syndrome
     Route: 065
  2. UNSPECIFIED INGREDIENT [Suspect]
     Active Substance: UNSPECIFIED INGREDIENT
     Indication: Myasthenia gravis
     Route: 065

REACTIONS (4)
  - Myasthenia gravis [Unknown]
  - Disease progression [Unknown]
  - Off label use [Unknown]
  - Drug effective for unapproved indication [Unknown]
